FAERS Safety Report 15519717 (Version 2)
Quarter: 2018Q4

REPORT INFORMATION
  Report Type: Spontaneous
  Country: CA (occurrence: CA)
  Receive Date: 20181017
  Receipt Date: 20181205
  Transmission Date: 20190205
  Serious: Yes (Other)
  Sender: FDA-Public Use
  Company Number: CA-009507513-1810CAN005956

PATIENT
  Age: 32 Year
  Sex: Male
  Weight: 93 kg

DRUGS (2)
  1. CYANOCOBALAMIN. [Concomitant]
     Active Substance: CYANOCOBALAMIN
  2. KEYTRUDA [Suspect]
     Active Substance: PEMBROLIZUMAB
     Indication: COLON CANCER
     Dosage: STRENGTH: 2 MG/ML. 200 MG, EVERY 3 WEEKS
     Route: 042
     Dates: start: 20180726

REACTIONS (9)
  - Malaise [Unknown]
  - Constipation [Recovered/Resolved]
  - Vomiting [Recovered/Resolved]
  - Fatigue [Not Recovered/Not Resolved]
  - Nausea [Recovered/Resolved]
  - Central venous catheterisation [Unknown]
  - Device related infection [Recovered/Resolved with Sequelae]
  - Depression [Not Recovered/Not Resolved]
  - Product use in unapproved indication [Unknown]

NARRATIVE: CASE EVENT DATE: 2018
